FAERS Safety Report 17746190 (Version 1)
Quarter: 2020Q2

REPORT INFORMATION
  Report Type: Spontaneous
  Country: US (occurrence: US)
  Receive Date: 20200505
  Receipt Date: 20200505
  Transmission Date: 20200714
  Serious: No
  Sender: FDA-Public Use
  Company Number: US-ROCHE-2379038

PATIENT
  Sex: Male

DRUGS (2)
  1. ALBUTEROL [SALBUTAMOL] [Concomitant]
     Active Substance: ALBUTEROL
  2. ESBRIET [Suspect]
     Active Substance: PIRFENIDONE
     Indication: PULMONARY HYPERTENSION
     Dosage: CAP 267 MG
     Route: 048

REACTIONS (4)
  - Sunburn [Not Recovered/Not Resolved]
  - Off label use [Unknown]
  - Dry skin [Not Recovered/Not Resolved]
  - Intentional product use issue [Unknown]
